FAERS Safety Report 4917679-8 (Version None)
Quarter: 2006Q1

REPORT INFORMATION
  Report Type: 
  Country: None (occurrence: None)
  Receive Date: 20060221
  Receipt Date: 20060210
  Transmission Date: 20060701
  Serious: Yes (Hospitalization)
  Sender: FDA-Public Use
  Company Number: JP-JNJFOC-20040808331

PATIENT
  Sex: Female
  Weight: 60 kg

DRUGS (30)
  1. REMICADE [Suspect]
     Route: 042
  2. REMICADE [Suspect]
     Route: 042
  3. REMICADE [Suspect]
     Route: 042
  4. REMICADE [Suspect]
     Route: 042
  5. REMICADE [Suspect]
     Route: 042
  6. REMICADE [Suspect]
     Indication: RHEUMATOID ARTHRITIS
     Route: 042
  7. RHEUMATREX [Concomitant]
     Dosage: APPROXIMATELY
     Route: 048
  8. RHEUMATREX [Concomitant]
     Route: 048
  9. RHEUMATREX [Concomitant]
     Route: 048
  10. RHEUMATREX [Concomitant]
     Indication: RHEUMATOID ARTHRITIS
     Route: 048
  11. PREDONIN [Concomitant]
     Route: 048
  12. PREDONIN [Concomitant]
     Route: 048
  13. PREDONIN [Concomitant]
     Route: 048
  14. PREDONIN [Concomitant]
     Indication: RHEUMATOID ARTHRITIS
     Route: 048
  15. LOXONIN [Concomitant]
     Dosage: 3 T
     Route: 048
  16. LOXONIN [Concomitant]
     Route: 048
  17. LOXONIN [Concomitant]
     Indication: RHEUMATOID ARTHRITIS
     Dosage: DOSE = 3 TABS
     Route: 048
  18. KETOPROFEN [Concomitant]
     Indication: RHEUMATOID ARTHRITIS
  19. CYTOTEC [Concomitant]
     Dosage: DOSE = 800 RG
     Route: 048
  20. CYTOTEC [Concomitant]
     Route: 048
  21. GASTER [Concomitant]
     Route: 048
  22. GASTER [Concomitant]
     Route: 048
  23. COLINORM [Concomitant]
     Route: 048
  24. MAZUREN S [Concomitant]
     Route: 048
  25. MAZUREN S [Concomitant]
     Dosage: 2 GRAMS
     Route: 048
  26. UNNORM [Concomitant]
     Route: 048
  27. RIMATIL [Concomitant]
     Route: 048
  28. RIMATIL [Concomitant]
     Indication: RHEUMATOID ARTHRITIS
     Route: 048
  29. FOLIAMIN [Concomitant]
     Route: 048
  30. ADRENAL HORMONE PREPARATION [Concomitant]
     Indication: RHEUMATOID ARTHRITIS

REACTIONS (3)
  - DIARRHOEA [None]
  - DISSEMINATED TUBERCULOSIS [None]
  - PYREXIA [None]
